FAERS Safety Report 4640831-6 (Version None)
Quarter: 2005Q2

REPORT INFORMATION
  Report Type: 
  Country: None (occurrence: None)
  Receive Date: 20050324
  Receipt Date: 20041127
  Transmission Date: 20051028
  Serious: Yes (Hospitalization)
  Sender: FDA-Public Use
  Company Number: 210764

PATIENT
  Age: 56 Year
  Sex: Female
  Weight: 53.5 kg

DRUGS (4)
  1. AVASTIN [Suspect]
     Indication: COLORECTAL CANCER METASTATIC
     Dosage: 260 MG, Q2W, INTRAVENOUS
     Route: 042
     Dates: start: 20041022
  2. ASPIRIN [Concomitant]
  3. CLARITIN [Concomitant]
  4. BUSPAR [Concomitant]

REACTIONS (2)
  - POST PROCEDURAL HAEMORRHAGE [None]
  - SYNCOPE [None]
